FAERS Safety Report 9231524 (Version 1)
Quarter: 2013Q2

REPORT INFORMATION
  Report Type: Spontaneous
  Country: FR (occurrence: FR)
  Receive Date: 20130415
  Receipt Date: 20130415
  Transmission Date: 20140414
  Serious: Yes (Other)
  Sender: FDA-Public Use
  Company Number: FR-GLAXOSMITHKLINE-B0881709A

PATIENT
  Age: 76 Year
  Sex: Female

DRUGS (5)
  1. AZANTAC [Suspect]
     Indication: PREMEDICATION
     Dosage: 50MG SINGLE DOSE
     Route: 042
     Dates: start: 20130208, end: 20130208
  2. PACLITAXEL [Suspect]
     Indication: LUNG CANCER METASTATIC
     Route: 042
     Dates: start: 20130208, end: 20130208
  3. POLARAMINE [Suspect]
     Indication: PREMEDICATION
     Dosage: 5MG SINGLE DOSE
     Route: 042
     Dates: start: 20130208, end: 20130208
  4. METHYLPREDNISOLONE [Suspect]
     Indication: PREMEDICATION
     Dosage: 60MG SINGLE DOSE
     Route: 042
     Dates: start: 20130208, end: 20130208
  5. CARBOPLATINE [Concomitant]
     Indication: LUNG CANCER METASTATIC
     Dosage: 366.22MG SINGLE DOSE
     Dates: start: 20130208, end: 20130208

REACTIONS (3)
  - Erythema [Recovered/Resolved]
  - Dyspnoea [Recovered/Resolved]
  - Hypertension [Recovered/Resolved]
